FAERS Safety Report 6818303-X (Version None)
Quarter: 2010Q3

REPORT INFORMATION
  Report Type: 
  Country: None (occurrence: None)
  Receive Date: 20100706
  Receipt Date: 20071119
  Transmission Date: 20110219
  Serious: No
  Sender: FDA-Public Use
  Company Number: US-PFIZER INC-2007094666

PATIENT
  Sex: Male
  Weight: 15.5 kg

DRUGS (1)
  1. ZITHROMAX [Suspect]
     Indication: BRONCHITIS
     Dates: start: 20070401, end: 20071109

REACTIONS (2)
  - DYSGEUSIA [None]
  - VOMITING [None]
